FAERS Safety Report 5927944-3 (Version None)
Quarter: 2008Q4

REPORT INFORMATION
  Report Type: 
  Country: None (occurrence: None)
  Receive Date: 20081022
  Receipt Date: 20081022
  Transmission Date: 20090506
  Serious: Yes (Other)
  Sender: FDA-Public Use
  Company Number: None

PATIENT
  Age: 74 Year
  Sex: Male
  Weight: 72.5755 kg

DRUGS (1)
  1. MIRAPEX [Suspect]
     Dosage: (1) .125 MG TABLET
     Dates: start: 20081013

REACTIONS (7)
  - ASTHENIA [None]
  - HYPERHIDROSIS [None]
  - MALAISE [None]
  - NAUSEA [None]
  - SKIN ODOUR ABNORMAL [None]
  - TREMOR [None]
  - UNEVALUABLE EVENT [None]
